FAERS Safety Report 24176593 (Version 1)
Quarter: 2024Q3

REPORT INFORMATION
  Report Type: Spontaneous
  Country: FR (occurrence: FR)
  Receive Date: 20240806
  Receipt Date: 20240806
  Transmission Date: 20241016
  Serious: Yes (Other)
  Sender: BRISTOL MYERS SQUIBB
  Company Number: None

PATIENT
  Age: 67 Year
  Sex: Female
  Weight: 92 kg

DRUGS (4)
  1. OPDIVO [Suspect]
     Active Substance: NIVOLUMAB
     Indication: Pleural mesothelioma
     Dosage: 12 CYCLES
     Route: 042
     Dates: start: 20220919, end: 20240103
  2. ALIMTA [Concomitant]
     Active Substance: PEMETREXED DISODIUM
     Indication: Pleural mesothelioma
     Dosage: 3 CYCLES
     Route: 042
     Dates: start: 20240311, end: 20240422
  3. CARBOPLATIN [Concomitant]
     Active Substance: CARBOPLATIN
     Indication: Pleural mesothelioma
     Dosage: 3 CYCLES
     Route: 042
     Dates: start: 20240311, end: 20240422
  4. AVASTIN [Concomitant]
     Active Substance: BEVACIZUMAB
     Indication: Pleural mesothelioma
     Dosage: 3 CYCLES
     Route: 042
     Dates: start: 20240311, end: 20240422

REACTIONS (2)
  - Morphoea [Not Recovered/Not Resolved]
  - Off label use [Unknown]

NARRATIVE: CASE EVENT DATE: 20240101
